FAERS Safety Report 12377875 (Version 1)
Quarter: 2016Q2

REPORT INFORMATION
  Report Type: Spontaneous
  Country: US (occurrence: US)
  Receive Date: 20160517
  Receipt Date: 20160517
  Transmission Date: 20160815
  Serious: No
  Sender: FDA-Public Use
  Company Number: US-JNJFOC-20160417840

PATIENT
  Age: 70 Year
  Sex: Female
  Weight: 68.04 kg

DRUGS (2)
  1. TYLENOL 8 HR ARTHRITIS PAIN [Suspect]
     Active Substance: ACETAMINOPHEN
     Indication: PROCEDURAL PAIN
     Dosage: ONCE
     Route: 048
     Dates: start: 20160418
  2. TYLENOL 8 HR ARTHRITIS PAIN [Suspect]
     Active Substance: ACETAMINOPHEN
     Indication: ARTHRALGIA
     Dosage: ONCE
     Route: 048
     Dates: start: 20160418

REACTIONS (6)
  - Product package associated injury [Recovering/Resolving]
  - Product use issue [Unknown]
  - Off label use [Unknown]
  - Pain in extremity [Recovering/Resolving]
  - Muscle strain [Recovering/Resolving]
  - Product closure removal difficult [Unknown]

NARRATIVE: CASE EVENT DATE: 20160418
